FAERS Safety Report 4386138-6 (Version None)
Quarter: 2004Q2

REPORT INFORMATION
  Report Type: 
  Country: None (occurrence: None)
  Receive Date: 20040625
  Receipt Date: 20040625
  Transmission Date: 20050107
  Serious: Yes (Hospitalization)
  Sender: FDA-Public Use
  Company Number: None

PATIENT
  Age: 55 Year
  Sex: Male

DRUGS (1)
  1. WARFARIN SODIUM [Suspect]
     Indication: CORONARY ARTERY DISEASE
     Dosage: PO
     Route: 048
     Dates: end: 20040402

REACTIONS (6)
  - DEEP VEIN THROMBOSIS [None]
  - GASTRITIS EROSIVE [None]
  - GASTROINTESTINAL HAEMORRHAGE [None]
  - HAEMATOCRIT DECREASED [None]
  - INTERNATIONAL NORMALISED RATIO INCREASED [None]
  - LEIOMYOMA [None]
